FAERS Safety Report 20791013 (Version 1)
Quarter: 2022Q2

REPORT INFORMATION
  Report Type: Spontaneous
  Country: TR (occurrence: TR)
  Receive Date: 20220505
  Receipt Date: 20220505
  Transmission Date: 20220721
  Serious: Yes (Other)
  Sender: FDA-Public Use
  Company Number: TR-ELI_LILLY_AND_COMPANY-TR202205000806

PATIENT
  Age: 59 Year
  Sex: Female

DRUGS (2)
  1. TERIPARATIDE [Suspect]
     Active Substance: TERIPARATIDE
     Indication: Osteoporosis postmenopausal
     Dosage: UNK
  2. TERIPARATIDE [Suspect]
     Active Substance: TERIPARATIDE
     Indication: Spinal fracture

REACTIONS (7)
  - Plasma cell myeloma [Unknown]
  - Hypercalcaemia [Unknown]
  - Pathological fracture [Unknown]
  - Bone density decreased [Unknown]
  - Back pain [Unknown]
  - Compression fracture [Unknown]
  - Asthenia [Unknown]
